FAERS Safety Report 12536958 (Version 1)
Quarter: 2016Q3

REPORT INFORMATION
  Report Type: Report from Study
  Country: JP (occurrence: JP)
  Receive Date: 20160707
  Receipt Date: 20160707
  Transmission Date: 20161109
  Serious: Yes (Death, Other)
  Sender: FDA-Public Use
  Company Number: JP-MYLANLABS-2016M1028115

PATIENT

DRUGS (1)
  1. METHOTREXATE. [Suspect]
     Active Substance: METHOTREXATE
     Indication: RHEUMATIC DISORDER
     Dosage: LOW DOSE
     Route: 065

REACTIONS (4)
  - Thrombocytopenia [Unknown]
  - Sepsis [Fatal]
  - Disseminated intravascular coagulation [Unknown]
  - Anaemia [Unknown]
